FAERS Safety Report 17526387 (Version 5)
Quarter: 2020Q2

REPORT INFORMATION
  Report Type: Report from Study
  Country: US (occurrence: US)
  Receive Date: 20200310
  Receipt Date: 20200420
  Transmission Date: 20200713
  Serious: Yes (Hospitalization)
  Sender: FDA-Public Use
  Company Number: US-ACTELION-A-NJ2020-200403

PATIENT
  Age: 1 Year
  Sex: Female
  Weight: 9.98 kg

DRUGS (24)
  1. TRACLEER [Suspect]
     Active Substance: BOSENTAN
     Indication: PULMONARY HYPERTENSION
     Dosage: 20 MG, BID
     Route: 048
     Dates: start: 20181218
  2. ACETAMINOPHEN. [Concomitant]
     Active Substance: ACETAMINOPHEN
     Indication: PYREXIA
     Dosage: 15 MG/KG, X1
     Route: 048
     Dates: start: 20191224, end: 20191224
  3. FLUTICASONE PROPIONATE. [Concomitant]
     Active Substance: FLUTICASONE PROPIONATE
     Dosage: 2 PUFF
     Dates: start: 20191221
  4. IPRATROPIUM [Concomitant]
     Active Substance: IPRATROPIUM
     Dosage: 0.25 MG, Q8H
     Dates: start: 20191221
  5. ACETAMINOPHEN. [Concomitant]
     Active Substance: ACETAMINOPHEN
     Dosage: 15 MG/KG, Q6HRS
     Route: 048
     Dates: start: 20200103
  6. CALCITRIOL. [Concomitant]
     Active Substance: CALCITRIOL
     Dosage: 1 MCG, QAM
     Dates: start: 20191221
  7. CLONIDINE. [Concomitant]
     Active Substance: CLONIDINE
     Dosage: 1 PATCH
     Route: 062
     Dates: start: 20191226
  8. POTASSIUM CHLORIDE. [Concomitant]
     Active Substance: POTASSIUM CHLORIDE
     Dosage: 10 MEQ, BID
     Dates: start: 20191221
  9. FUROSEMIDE. [Concomitant]
     Active Substance: FUROSEMIDE
     Dosage: 15 MG, Q12H
     Dates: start: 20191221
  10. SPIRONOLACTONE. [Concomitant]
     Active Substance: SPIRONOLACTONE
     Dosage: 15 MG, BID
     Dates: start: 20200103
  11. EUCERIN [Concomitant]
     Active Substance: ENSULIZOLE\EUCERIN\OCTINOXATE\OCTISALATE\TITANIUM DIOXIDE\ZINC OXIDE
     Dosage: UNK, TID
     Route: 061
  12. CHLOROTHIAZIDE. [Concomitant]
     Active Substance: CHLOROTHIAZIDE
     Dosage: 20 MG/KG, BID
     Dates: start: 20200103
  13. NYSTATIN. [Concomitant]
     Active Substance: NYSTATIN
     Dosage: UNK
     Dates: start: 20191221
  14. TADALAFIL. [Concomitant]
     Active Substance: TADALAFIL
     Dosage: 1 MG/KG, QD
     Dates: start: 20191221
  15. ERYTHROMYCIN ETHYLSUCCINATE. [Concomitant]
     Active Substance: ERYTHROMYCIN ETHYLSUCCINATE
     Dosage: 10 MG/KG, TID
     Dates: start: 20200104
  16. FUROSEMIDE. [Concomitant]
     Active Substance: FUROSEMIDE
     Dosage: 1 MG/KG, X1
     Route: 042
     Dates: start: 20191229, end: 20191229
  17. SODIUM CHLORIDE. [Concomitant]
     Active Substance: SODIUM CHLORIDE
     Dosage: 4 ML, QID
     Dates: start: 20191221
  18. SODIUM CHLORIDE. [Concomitant]
     Active Substance: SODIUM CHLORIDE
     Dosage: 4 ML, Q6HRS
     Dates: start: 20191221
  19. TRACLEER [Suspect]
     Active Substance: BOSENTAN
     Dosage: 32 MG, QD
     Route: 048
  20. CALCIUM CARBONATE. [Concomitant]
     Active Substance: CALCIUM CARBONATE
     Dosage: 90 MG/KG, Q6HRS
  21. SODIUM CHLORIDE. [Concomitant]
     Active Substance: SODIUM CHLORIDE
     Dosage: 9.6 MEQ, BID
     Dates: start: 20200103
  22. CYPROHEPTADINE. [Concomitant]
     Active Substance: CYPROHEPTADINE
     Dosage: 3 MG, BID
     Route: 048
     Dates: start: 20191221
  23. LANSOPRAZOLE. [Concomitant]
     Active Substance: LANSOPRAZOLE
     Dosage: 10.2 MG, Q12HRS
     Dates: start: 20191221
  24. OFLOXACIN. [Concomitant]
     Active Substance: OFLOXACIN
     Dosage: 5 DROP, BID
     Dates: start: 20200106

REACTIONS (8)
  - Vomiting [Recovered/Resolved]
  - Complication associated with device [Unknown]
  - Respiratory distress [Unknown]
  - Tracheitis [Recovered/Resolved]
  - Oxygen saturation decreased [Unknown]
  - Teething [Unknown]
  - Gastroenteritis [Recovered/Resolved]
  - Hospitalisation [Unknown]

NARRATIVE: CASE EVENT DATE: 20191220
